FAERS Safety Report 7561258-3 (Version None)
Quarter: 2011Q2

REPORT INFORMATION
  Report Type: 
  Country: None (occurrence: None)
  Receive Date: 20110621
  Receipt Date: 20110307
  Transmission Date: 20111010
  Serious: No
  Sender: FDA-Public Use
  Company Number: US-ASTRAZENECA-2011SE12987

PATIENT
  Age: 50 Year
  Sex: Male

DRUGS (4)
  1. PULMICORT [Suspect]
     Indication: ASTHMA
     Dosage: TWO TIMES A DAY
     Route: 055
  2. PULMICORT [Suspect]
     Indication: NASAL POLYPS
     Dosage: TWO TIMES A DAY
     Route: 055
  3. PULMICORT [Suspect]
     Dosage: ONE TIME PER DAY
     Route: 055
  4. PULMICORT [Suspect]
     Dosage: ONE TIME PER DAY
     Route: 055

REACTIONS (2)
  - CONDITION AGGRAVATED [None]
  - INCORRECT DOSE ADMINISTERED [None]
